FAERS Safety Report 6443569-8 (Version None)
Quarter: 2009Q4

REPORT INFORMATION
  Report Type: 
  Country: None (occurrence: None)
  Receive Date: 20091113
  Receipt Date: 20091102
  Transmission Date: 20100525
  Serious: Yes (Other)
  Sender: FDA-Public Use
  Company Number: 430051M09USA

PATIENT
  Age: 58 Year
  Sex: Male

DRUGS (2)
  1. NOVANTRONE [Suspect]
     Indication: MULTIPLE SCLEROSIS
  2. TYSABRI [Suspect]
     Indication: RELAPSING-REMITTING MULTIPLE SCLEROSIS
     Dates: start: 20071001, end: 20090501

REACTIONS (2)
  - PERIPHERAL T-CELL LYMPHOMA UNSPECIFIED [None]
  - PROGRESSIVE MULTIPLE SCLEROSIS [None]
